FAERS Safety Report 18392637 (Version 1)
Quarter: 2020Q4

REPORT INFORMATION
  Report Type: Spontaneous
  Country: US (occurrence: US)
  Receive Date: 20201016
  Receipt Date: 20201016
  Transmission Date: 20210114
  Serious: Yes (Other)
  Sender: FDA-Public Use
  Company Number: US-EDGEWELL PERSONAL CARE, LLC-2092855

PATIENT
  Age: 38 Year
  Sex: Male

DRUGS (1)
  1. BANANA BOAT ULTRA SPORT SUNSCREEN BROAD SPECTRUM SPF 50 [Suspect]
     Active Substance: AVOBENZONE\HOMOSALATE\OCTISALATE\OCTOCRYLENE
     Indication: PROPHYLAXIS AGAINST SOLAR RADIATION
     Route: 061
     Dates: start: 20201006, end: 20201006

REACTIONS (4)
  - Product caught fire [Recovered/Resolved]
  - Thermal burn [Recovered/Resolved]
  - Erythema [Recovered/Resolved]
  - Skin irritation [Recovered/Resolved]

NARRATIVE: CASE EVENT DATE: 20201006
